FAERS Safety Report 6788081-1 (Version None)
Quarter: 2010Q2

REPORT INFORMATION
  Report Type: 
  Country: None (occurrence: None)
  Receive Date: 20100623
  Receipt Date: 20080508
  Transmission Date: 20101027
  Serious: Yes (Other)
  Sender: FDA-Public Use
  Company Number: US-PFIZER INC-2007090166

PATIENT
  Age: 44 Year
  Sex: Male

DRUGS (8)
  1. GEODON [Interacting]
     Indication: SCHIZOAFFECTIVE DISORDER
     Dates: start: 20071001
  2. GEODON [Interacting]
     Indication: SCHIZOPHRENIA
  3. HALDOL [Interacting]
  4. CLOZARIL [Suspect]
  5. LITHIUM [Suspect]
  6. CLONOPIN [Interacting]
  7. COGENTIN [Interacting]
  8. ZYPREXA [Concomitant]
     Dates: end: 20070101

REACTIONS (16)
  - AGITATION [None]
  - CHEST DISCOMFORT [None]
  - DECREASED ACTIVITY [None]
  - DIZZINESS [None]
  - DRUG INTERACTION [None]
  - DYSPNOEA [None]
  - ELECTROCARDIOGRAM QT PROLONGED [None]
  - HEAD DISCOMFORT [None]
  - HYPERVENTILATION [None]
  - INDIFFERENCE [None]
  - NERVOUSNESS [None]
  - PSYCHOTIC DISORDER [None]
  - SOMNOLENCE [None]
  - SPEECH DISORDER [None]
  - TREMOR [None]
  - UNEVALUABLE EVENT [None]
